FAERS Safety Report 15750349 (Version 4)
Quarter: 2022Q3

REPORT INFORMATION
  Report Type: Spontaneous
  Country: US (occurrence: US)
  Receive Date: 20181221
  Receipt Date: 20220728
  Transmission Date: 20221027
  Serious: Yes (Other)
  Sender: FDA-Public Use
  Company Number: US-PFIZER INC-2018523129

PATIENT
  Age: 19 Year
  Sex: Female

DRUGS (3)
  1. SOMAVERT [Suspect]
     Active Substance: PEGVISOMANT
     Indication: Acromegaly
     Dosage: 10 MG, UNK
     Route: 058
     Dates: start: 2015, end: 201608
  2. SOMAVERT [Suspect]
     Active Substance: PEGVISOMANT
     Dosage: 20 MG, DAILY
     Route: 058
     Dates: start: 201608
  3. SOMAVERT [Suspect]
     Active Substance: PEGVISOMANT
     Dosage: 30 MG (3 TIMES A WEEK)
     Route: 058
     Dates: start: 201601

REACTIONS (12)
  - Diabetes insipidus [Unknown]
  - Drug ineffective [Unknown]
  - Aggression [Unknown]
  - Rash [Unknown]
  - Injection site hypertrophy [Unknown]
  - Arthralgia [Unknown]
  - Headache [Unknown]
  - Injection site reaction [Unknown]
  - Lipohypertrophy [Unknown]
  - Product dose omission issue [Unknown]
  - Pain [Unknown]
  - Off label use [Unknown]

NARRATIVE: CASE EVENT DATE: 20160101
